FAERS Safety Report 21220038 (Version 1)
Quarter: 2022Q3

REPORT INFORMATION
  Report Type: Spontaneous
  Country: US (occurrence: US)
  Receive Date: 20220817
  Receipt Date: 20220817
  Transmission Date: 20221027
  Serious: No
  Sender: FDA-Public Use
  Company Number: US-BRISTOL-MYERS SQUIBB COMPANY-2022-089625

PATIENT
  Age: 54 Year
  Sex: Male

DRUGS (2)
  1. IDHIFA [Suspect]
     Active Substance: ENASIDENIB MESYLATE
     Indication: Colitis ulcerative
     Route: 048
     Dates: start: 20220513
  2. CYCLOSPORINE [Concomitant]
     Active Substance: CYCLOSPORINE

REACTIONS (1)
  - Fluid retention [Unknown]
